FAERS Safety Report 8017938-9 (Version None)
Quarter: 2012Q1

REPORT INFORMATION
  Report Type: 
  Country: None (occurrence: None)
  Receive Date: 20120103
  Receipt Date: 20111227
  Transmission Date: 20120608
  Serious: Yes (Hospitalization)
  Sender: FDA-Public Use
  Company Number: JP-JNJFOC-20110908207

PATIENT
  Sex: Male
  Weight: 77 kg

DRUGS (6)
  1. MIYA BM [Concomitant]
     Route: 048
     Dates: start: 20100306
  2. IMURAN [Concomitant]
     Route: 048
     Dates: start: 20100501, end: 20110915
  3. ELENTAL [Concomitant]
     Route: 048
     Dates: start: 20100306
  4. PENTASA [Concomitant]
     Route: 048
     Dates: start: 20100306
  5. REMICADE [Suspect]
     Indication: CROHN'S DISEASE
     Dosage: FIRST DOSE
     Route: 042
     Dates: start: 20100501
  6. REMICADE [Suspect]
     Route: 042
     Dates: start: 20100723

REACTIONS (1)
  - MENINGITIS LISTERIA [None]
